FAERS Safety Report 4359114-7 (Version None)
Quarter: 2004Q2

REPORT INFORMATION
  Report Type: 
  Country: None (occurrence: None)
  Receive Date: 20040512
  Receipt Date: 20040426
  Transmission Date: 20050107
  Serious: Yes (Hospitalization)
  Sender: FDA-Public Use
  Company Number: 2004CG00678

PATIENT
  Age: 62 Year
  Sex: Female

DRUGS (34)
  1. MOPRAL [Suspect]
     Dosage: 20 MG QD PO
     Route: 048
     Dates: start: 20040121, end: 20040224
  2. BACTRIM [Suspect]
     Dosage: 1 DF QD PO
     Route: 048
     Dates: start: 20040122, end: 20040218
  3. TRIFLUCAN [Suspect]
     Dates: end: 20040201
  4. VANCOMYCIN [Suspect]
     Dates: start: 20040318, end: 20040322
  5. FORTUM [Suspect]
     Dates: start: 20040320, end: 20040321
  6. MALOCIDE [Suspect]
     Dates: start: 20040310, end: 20040321
  7. CYMEVAN [Suspect]
     Dates: end: 20040301
  8. VINCRISTINE [Concomitant]
  9. DOXORUBICIN HCL [Concomitant]
  10. ALKERAN [Concomitant]
  11. IMOVANE [Concomitant]
  12. LEXOMIL [Concomitant]
  13. ATARAX [Concomitant]
  14. SPECIAFOLDINE [Concomitant]
  15. TIORFAN [Concomitant]
  16. TAMIK [Concomitant]
  17. MEDROL [Concomitant]
  18. ZOPHREN [Concomitant]
  19. CIPROFLOXACIN [Concomitant]
  20. OROKEN [Concomitant]
  21. HEPARIN [Concomitant]
  22. TRANXENE [Concomitant]
  23. SOLUDECADRON [Concomitant]
  24. SOLU-MEDROL [Concomitant]
  25. FUNGIZONE [Concomitant]
  26. CLINDAMYCIN HCL [Concomitant]
  27. COLIMYCIN [Concomitant]
  28. AMIKLIN [Concomitant]
  29. TIENAM/SCH [Concomitant]
  30. FLAGYL [Concomitant]
  31. VITAMNI B12 [Concomitant]
  32. NEUPOGEN [Concomitant]
  33. ACETAMINOPHEN [Concomitant]
  34. VALACYCLOVIR HCL [Concomitant]

REACTIONS (5)
  - CYTOLYTIC HEPATITIS [None]
  - DRUG RASH WITH EOSINOPHILIA AND SYSTEMIC SYMPTOMS [None]
  - DRUG TOXICITY [None]
  - GASTROINTESTINAL DISORDER [None]
  - SKIN REACTION [None]
